FAERS Safety Report 25685604 (Version 1)
Quarter: 2025Q3

REPORT INFORMATION
  Report Type: Spontaneous
  Country: EU (occurrence: EU)
  Receive Date: 20250815
  Receipt Date: 20250815
  Transmission Date: 20251020
  Serious: Yes (Death, Hospitalization, Other)
  Sender: ELI LILLY AND COMPANY
  Company Number: EU-ELI_LILLY_AND_COMPANY-FR202508012479

PATIENT
  Age: 75 Year
  Sex: Male
  Weight: 100 kg

DRUGS (4)
  1. GEMCITABINE HYDROCHLORIDE [Suspect]
     Active Substance: GEMCITABINE HYDROCHLORIDE
     Indication: B-cell lymphoma
     Route: 042
     Dates: start: 2025
  2. DOXORUBICIN HYDROCHLORIDE [Suspect]
     Active Substance: DOXORUBICIN HYDROCHLORIDE
     Indication: B-cell lymphoma
     Route: 065
  3. OXALIPLATIN [Suspect]
     Active Substance: OXALIPLATIN
     Indication: B-cell lymphoma
     Route: 042
     Dates: start: 2025
  4. COLUMVI [Suspect]
     Active Substance: GLOFITAMAB-GXBM
     Indication: B-cell lymphoma
     Route: 042
     Dates: start: 20250522, end: 20250719

REACTIONS (8)
  - Encephalopathy [Fatal]
  - Immune effector cell-associated neurotoxicity syndrome [Fatal]
  - Infection [Not Recovered/Not Resolved]
  - Liver abscess [Unknown]
  - Pneumonia bacterial [Unknown]
  - Enterococcal infection [Unknown]
  - Systemic candida [Unknown]
  - Off label use [Unknown]

NARRATIVE: CASE EVENT DATE: 20250101
